FAERS Safety Report 8067183-6 (Version None)
Quarter: 2012Q1

REPORT INFORMATION
  Report Type: 
  Country: None (occurrence: None)
  Receive Date: 20120124
  Receipt Date: 20110517
  Transmission Date: 20120608
  Serious: Yes (Hospitalization)
  Sender: FDA-Public Use
  Company Number: US-GLAXOSMITHKLINE-A0928808A

PATIENT
  Age: 58 Year
  Sex: Female

DRUGS (1)
  1. AVANDIA [Suspect]
     Indication: DIABETES MELLITUS
     Route: 048
     Dates: start: 20040101, end: 20100101

REACTIONS (10)
  - OXYGEN SUPPLEMENTATION [None]
  - EMPHYSEMA [None]
  - CARDIAC FAILURE CONGESTIVE [None]
  - CHRONIC OBSTRUCTIVE PULMONARY DISEASE [None]
  - BALANCE DISORDER [None]
  - MYOCARDIAL INFARCTION [None]
  - ASTHENIA [None]
  - HEMIPLEGIA [None]
  - DECREASED ACTIVITY [None]
  - ASTHMA [None]
